FAERS Safety Report 8323154-3 (Version None)
Quarter: 2012Q2

REPORT INFORMATION
  Report Type: 
  Country: None (occurrence: None)
  Receive Date: 20120430
  Receipt Date: 20120419
  Transmission Date: 20120825
  Serious: Yes (Other)
  Sender: FDA-Public Use
  Company Number: US-ASTRAZENECA-2010SE52924

PATIENT
  Age: 84 Year
  Sex: Female

DRUGS (3)
  1. NEXIUM [Suspect]
     Route: 048
  2. PRILOSEC OTC [Suspect]
     Route: 048
  3. ZANTAC [Concomitant]

REACTIONS (14)
  - VOMITING [None]
  - BALANCE DISORDER [None]
  - OCULAR HYPERAEMIA [None]
  - UPPER LIMB FRACTURE [None]
  - EYE IRRITATION [None]
  - VISUAL IMPAIRMENT [None]
  - ABDOMINAL DISCOMFORT [None]
  - INTENTIONAL DRUG MISUSE [None]
  - WRIST FRACTURE [None]
  - MACULAR DEGENERATION [None]
  - VERTIGO [None]
  - APHAGIA [None]
  - DRUG INEFFECTIVE [None]
  - FALL [None]
